FAERS Safety Report 8695191 (Version 2)
Quarter: 2013Q4

REPORT INFORMATION
  Report Type: Spontaneous
  Country: US (occurrence: US)
  Receive Date: 20120731
  Receipt Date: 20131107
  Transmission Date: 20140711
  Serious: Yes (Disabling, Other)
  Sender: FDA-Public Use
  Company Number: US-009507513-1207USA009865

PATIENT
  Age: 70 Year
  Sex: Male

DRUGS (42)
  1. ZOCOR [Suspect]
     Route: 048
  2. TRAMADOL HYDROCHLORIDE [Suspect]
  3. MOTRIN [Suspect]
  4. ADVIL [Suspect]
     Dosage: UNK, PRN
  5. ALPRAZOLAM [Suspect]
  6. CODEINE [Suspect]
  7. TOPROL XL TABLETS [Suspect]
  8. PROSCAR [Suspect]
     Route: 048
  9. REGLAN [Suspect]
  10. PLAVIX [Suspect]
  11. LOTRIMIN [Suspect]
  12. ZETIA [Suspect]
     Route: 048
  13. CYCLOSPORINE [Suspect]
  14. PROZAC [Suspect]
  15. LUVOX [Suspect]
  16. COREG [Suspect]
  17. GLUCOPHAGE [Suspect]
  18. XALATAN [Suspect]
     Route: 047
  19. LIPITOR [Suspect]
  20. VIAGRA [Suspect]
  21. METOPROLOL TARTRATE [Suspect]
     Dosage: UNK, QD
  22. MOTRIN [Suspect]
     Dosage: UNK, PRN
  23. METFORMIN HYDROCHLORIDE [Suspect]
  24. DIGOXIN [Concomitant]
     Dosage: 0.125 MG, UNK
  25. PILOCARPINE [Concomitant]
  26. ALLOPURINOL [Concomitant]
     Dosage: UNK, QD
  27. LANTUS [Concomitant]
     Dosage: UNK, QD
  28. POTASSIUM CHLORIDE [Concomitant]
  29. FUROSEMIDE [Concomitant]
  30. PRAVASTATIN SODIUM [Concomitant]
     Dosage: UNK, QD
  31. TIMOLOL [Concomitant]
     Dosage: UNK, QID
  32. LUMIGAN [Concomitant]
  33. THERA TEARS [Concomitant]
  34. DIAZEPAM [Concomitant]
  35. BILBERRY [Concomitant]
  36. CLOZAPINE [Concomitant]
  37. OMEGA-3 MARINE TRIGLYCERIDES [Concomitant]
  38. FOLIC ACID [Concomitant]
  39. ASPIRIN [Concomitant]
  40. ACETAMINOPHEN (+) HYDROCODONE BITARTRATE [Concomitant]
  41. LOSARTAN POTASSIUM [Concomitant]
     Dosage: 0.125 MG, QD
     Route: 048
  42. OXYCODONE [Concomitant]
     Dosage: UNK, QD

REACTIONS (14)
  - Skin irritation [Unknown]
  - Blood glucose increased [Unknown]
  - Fatigue [Unknown]
  - Vomiting [Unknown]
  - Dyspnoea [Unknown]
  - Abasia [Unknown]
  - Sleep disorder [Unknown]
  - Hip arthroplasty [Unknown]
  - Back pain [Unknown]
  - Drug hypersensitivity [Unknown]
  - Asthenia [Unknown]
  - Constipation [Unknown]
  - Myalgia [Unknown]
  - Nausea [Unknown]
